FAERS Safety Report 14603444 (Version 1)
Quarter: 2018Q1

REPORT INFORMATION
  Report Type: Spontaneous
  Country: US (occurrence: US)
  Receive Date: 20180305
  Receipt Date: 20180305
  Transmission Date: 20180509
  Serious: Yes (Hospitalization)
  Sender: FDA-Public Use
  Company Number: None

PATIENT
  Age: 59 Year
  Sex: Male
  Weight: 88.1 kg

DRUGS (2)
  1. TACROLIMUS. [Suspect]
     Active Substance: TACROLIMUS
     Indication: RENAL TRANSPLANT
     Route: 048
  2. FLUCONAZOLE. [Concomitant]
     Active Substance: FLUCONAZOLE
     Dates: start: 20180126, end: 20180204

REACTIONS (13)
  - Lethargy [None]
  - Memory impairment [None]
  - Hallucination [None]
  - Delirium [None]
  - Neurotoxicity [None]
  - Enterobacter test positive [None]
  - Pain [None]
  - Tremor [None]
  - Infection [None]
  - Dyspnoea [None]
  - Azotaemia [None]
  - Culture urine positive [None]
  - Incorrect dose administered [None]

NARRATIVE: CASE EVENT DATE: 20180204
